FAERS Safety Report 13177954 (Version 1)
Quarter: 2017Q1

REPORT INFORMATION
  Report Type: Spontaneous
  Country: None (occurrence: US)
  Receive Date: 20170201
  Receipt Date: 20170201
  Transmission Date: 20170428
  Serious: Yes (Hospitalization)
  Sender: FDA-Public Use
  Company Number: None

PATIENT
  Sex: Female

DRUGS (1)
  1. MYCOPHENOLATE [Suspect]
     Active Substance: MYCOPHENOLIC ACID
     Indication: HEART TRANSPLANT
     Dosage: 1750MG DAILY (DIVIDED DOSE) BY MOUTH
     Route: 048
     Dates: start: 20170113

REACTIONS (2)
  - Gastrointestinal disorder [None]
  - Nephrotic syndrome [None]
